FAERS Safety Report 6002415-7 (Version None)
Quarter: 2008Q4

REPORT INFORMATION
  Report Type: 
  Country: None (occurrence: None)
  Receive Date: 20081215
  Receipt Date: 20071205
  Transmission Date: 20090506
  Serious: No
  Sender: FDA-Public Use
  Company Number: US-AMGEN-KDL254648

PATIENT
  Sex: Female
  Weight: 74 kg

DRUGS (14)
  1. ENBREL [Suspect]
     Indication: RHEUMATOID ARTHRITIS
     Route: 058
     Dates: start: 20071114
  2. METHOTREXATE [Concomitant]
     Dates: start: 20071030
  3. PLAQUENIL [Concomitant]
     Dates: start: 20071030
  4. ACTONEL [Concomitant]
     Dates: start: 20071023
  5. CALCICHEW [Concomitant]
  6. FOLIC ACID [Concomitant]
     Dates: start: 20071030
  7. LEXAPRO [Concomitant]
  8. OXYCONTIN [Concomitant]
     Dates: start: 20071121
  9. PERCOCET [Concomitant]
     Dates: start: 20071121
  10. PREDNISONE TAB [Concomitant]
     Dates: start: 20071030
  11. PROTONIX [Concomitant]
     Dates: start: 20071023
  12. RHINOCORT [Concomitant]
     Dates: start: 20070731
  13. SKELAXIN [Concomitant]
  14. VITAMIN B-12 [Concomitant]

REACTIONS (5)
  - INJECTION SITE ERYTHEMA [None]
  - INJECTION SITE RASH [None]
  - PAIN [None]
  - PYREXIA [None]
  - SNEEZING [None]
